FAERS Safety Report 23895712 (Version 2)
Quarter: 2024Q2

REPORT INFORMATION
  Report Type: Report from Study
  Country: CN (occurrence: CN)
  Receive Date: 20240524
  Receipt Date: 20240613
  Transmission Date: 20240716
  Serious: Yes (Hospitalization, Other)
  Sender: FDA-Public Use
  Company Number: CN-BAXTER-2024BAX018760

PATIENT
  Age: 33 Year
  Sex: Male
  Weight: 64.5 kg

DRUGS (6)
  1. CYCLOPHOSPHAMIDE [Suspect]
     Active Substance: CYCLOPHOSPHAMIDE
     Indication: Diffuse large B-cell lymphoma
     Dosage: 1363.3 MG, EVERY 3 WEEKS, ONGOING
     Route: 042
     Dates: start: 20240426
  2. EPCORITAMAB [Suspect]
     Active Substance: EPCORITAMAB
     Indication: Diffuse large B-cell lymphoma
     Dosage: 0.16 MG C1D1, PRIMING DOSE, TOTAL
     Route: 058
     Dates: start: 20240425, end: 20240425
  3. VINCRISTINE [Suspect]
     Active Substance: VINCRISTINE
     Indication: Diffuse large B-cell lymphoma
     Dosage: 2 MG, EVERY 3 WEEKS, ONGOING
     Route: 042
     Dates: start: 20240426
  4. RITUXIMAB [Suspect]
     Active Substance: RITUXIMAB
     Indication: Diffuse large B-cell lymphoma
     Dosage: 681.65 MG, EVERY 3 WEEKS, ONGOING
     Route: 042
     Dates: start: 20240425
  5. DOXORUBICIN [Suspect]
     Active Substance: DOXORUBICIN
     Indication: Diffuse large B-cell lymphoma
     Dosage: 90.84 MG, EVERY 3 WEEKS, ONGOING
     Route: 042
     Dates: start: 20240426
  6. PREDNISONE [Suspect]
     Active Substance: PREDNISONE
     Indication: Diffuse large B-cell lymphoma
     Dosage: 100, C1-6, DAY 1-5, EVERY 1 DAYS, THERAPY START DATE: APR-2024, ONGOING
     Route: 048

REACTIONS (1)
  - Gastric haemorrhage [Recovered/Resolved]

NARRATIVE: CASE EVENT DATE: 20240501
